FAERS Safety Report 5938131-7 (Version None)
Quarter: 2008Q4

REPORT INFORMATION
  Report Type: 
  Country: None (occurrence: None)
  Receive Date: 20081031
  Receipt Date: 20081028
  Transmission Date: 20090506
  Serious: Yes (Other)
  Sender: FDA-Public Use
  Company Number: US-ROXANE LABORATORIES, INC.-2008-RO-00171RO

PATIENT
  Age: 47 Year
  Sex: Female

DRUGS (10)
  1. MYCOPHENOLATE MOFETIL [Suspect]
     Indication: IMMUNOSUPPRESSANT DRUG THERAPY
     Dosage: 2000MG
  2. PREDNISONE [Suspect]
     Indication: IMMUNOSUPPRESSANT DRUG THERAPY
  3. PREDNISONE [Suspect]
     Dosage: 7MG
  4. AZATHIOPRINE [Suspect]
     Indication: IMMUNOSUPPRESSANT DRUG THERAPY
     Dosage: 25MG
  5. PYRIDOSTIGMINE BROMIDE [Suspect]
     Indication: IMMUNOSUPPRESSANT DRUG THERAPY
  6. IMMUNE GLOBULIN INTRAVENOUS (HUMAN) [Concomitant]
     Indication: IMMUNOSUPPRESSANT DRUG THERAPY
     Route: 042
  7. DOXYCYCLINE [Concomitant]
     Indication: MYCOBACTERIAL INFECTION
     Dosage: 200MG
  8. ETHAMBUTOL HYDROCHLORIDE [Concomitant]
     Indication: MYCOBACTERIAL INFECTION
     Dosage: 800MG
  9. RIFABUTIN [Concomitant]
     Indication: MYCOBACTERIAL INFECTION
     Dosage: 300MG
  10. AZITHROMYCIN [Concomitant]
     Indication: MYCOBACTERIAL INFECTION
     Dosage: 250MG

REACTIONS (1)
  - MYCOBACTERIAL INFECTION [None]
